FAERS Safety Report 5501633-1 (Version None)
Quarter: 2007Q4

REPORT INFORMATION
  Report Type: 
  Country: None (occurrence: None)
  Receive Date: 20071030
  Receipt Date: 20071018
  Transmission Date: 20080405
  Serious: Yes (Other)
  Sender: FDA-Public Use
  Company Number: US-ELI_LILLY_AND_COMPANY-US200710004647

PATIENT
  Sex: Female

DRUGS (13)
  1. FORTEO [Suspect]
     Dates: start: 20061001
  2. VITAMINS [Concomitant]
  3. FUROSEMIDE [Concomitant]
  4. GABAPENTIN [Concomitant]
  5. LISINOPRIL [Concomitant]
  6. LIPITOR [Concomitant]
  7. METOPROLOL [Concomitant]
  8. MIRAPEX [Concomitant]
  9. MIRTAZAPINE [Concomitant]
  10. PREMARIN [Concomitant]
  11. CLONAZEPAM [Concomitant]
  12. CLONIDINE [Concomitant]
  13. ATENOLOL [Concomitant]

REACTIONS (5)
  - DISTURBANCE IN ATTENTION [None]
  - FALL [None]
  - HYPERSOMNIA [None]
  - MEMORY IMPAIRMENT [None]
  - MENTAL IMPAIRMENT [None]
